FAERS Safety Report 6752290-8 (Version None)
Quarter: 2010Q2

REPORT INFORMATION
  Report Type: 
  Country: None (occurrence: None)
  Receive Date: 20100602
  Receipt Date: 20100521
  Transmission Date: 20101027
  Serious: Yes (Other)
  Sender: FDA-Public Use
  Company Number: PHHY2010US33404

PATIENT
  Sex: Male
  Weight: 106 kg

DRUGS (5)
  1. TEKTURNA HCT [Suspect]
     Dosage: 12.5/150 MG
     Dates: start: 20090316
  2. TEKTURNA HCT [Suspect]
     Dosage: 12.5/300 MG
     Dates: end: 20090826
  3. BYSTOLIC [Concomitant]
     Dosage: 5 MG, OTS
  4. METFORMIN HCL [Concomitant]
     Dosage: 500 MG, BID
  5. NIASPAN [Concomitant]
     Dosage: 500 MG, QHS

REACTIONS (2)
  - HAEMATURIA [None]
  - TUBULOINTERSTITIAL NEPHRITIS [None]
